FAERS Safety Report 21295845 (Version 1)
Quarter: 2022Q3

REPORT INFORMATION
  Report Type: Spontaneous
  Country: US (occurrence: US)
  Receive Date: 20220906
  Receipt Date: 20220906
  Transmission Date: 20221027
  Serious: Yes (Other)
  Sender: FDA-Public Use
  Company Number: US-SA-SAC20220902000937

PATIENT

DRUGS (1)
  1. RANITIDINE HYDROCHLORIDE [Suspect]
     Active Substance: RANITIDINE HYDROCHLORIDE
     Dosage: PRESCRIPTION RANITIDINE FROM APPROXIMATELY 2015 TO 2019
     Route: 048
     Dates: start: 2015, end: 2019

REACTIONS (1)
  - Breast cancer [Unknown]
